FAERS Safety Report 17286961 (Version 1)
Quarter: 2020Q1

REPORT INFORMATION
  Report Type: Report from Study
  Country: US (occurrence: US)
  Receive Date: 20200120
  Receipt Date: 20200120
  Transmission Date: 20200409
  Serious: Yes (Hospitalization)
  Sender: FDA-Public Use
  Company Number: US-ROCHE-2520601

PATIENT
  Age: 61 Year
  Sex: Female
  Weight: 77.18 kg

DRUGS (1)
  1. OCREVUS [Suspect]
     Active Substance: OCRELIZUMAB
     Indication: PRIMARY PROGRESSIVE MULTIPLE SCLEROSIS
     Dosage: SUBSEQUENT DOSE: 04/AUG/2017, 30/JAN/2018, 21/AUG/2018, 17/APR/2019?ON DAY 1 AND 15 THEN 600 MG ONCE
     Route: 042
     Dates: start: 20170720

REACTIONS (4)
  - Pneumonia [Recovered/Resolved]
  - Hypotension [Recovered/Resolved]
  - Sinusitis [Recovered/Resolved]
  - B-lymphocyte count decreased [Not Recovered/Not Resolved]

NARRATIVE: CASE EVENT DATE: 201904
